FAERS Safety Report 4395751-1 (Version None)
Quarter: 2004Q3

REPORT INFORMATION
  Report Type: 
  Country: None (occurrence: None)
  Receive Date: 20040709
  Receipt Date: 20040707
  Transmission Date: 20050211
  Serious: Yes (Death)
  Sender: FDA-Public Use
  Company Number: 400220502/AKO-4141-AE

PATIENT
  Age: 79 Year
  Sex: Female

DRUGS (5)
  1. AK-FLUOR [Suspect]
     Indication: ANGIOGRAM RETINA
     Dosage: 2 ML X 1, IV
     Route: 042
     Dates: start: 20040615
  2. NEXIUM [Concomitant]
  3. PACERONE [Concomitant]
  4. TROPICAMIDE [Concomitant]
  5. NEOSYNEPHRINE [Concomitant]

REACTIONS (9)
  - ABNORMAL BEHAVIOUR [None]
  - ANAPHYLACTOID REACTION [None]
  - COMA [None]
  - DISORIENTATION [None]
  - HYPERHIDROSIS [None]
  - HYPOTENSION [None]
  - NAUSEA [None]
  - PALLOR [None]
  - SYNCOPE [None]
